FAERS Safety Report 5542444-0 (Version None)
Quarter: 2007Q4

REPORT INFORMATION
  Report Type: 
  Country: None (occurrence: None)
  Receive Date: 20071129
  Receipt Date: 20070425
  Transmission Date: 20080405
  Serious: Yes (Other)
  Sender: FDA-Public Use
  Company Number: US200703004573

PATIENT
  Age: 31 Year
  Sex: Female
  Weight: 113.4 kg

DRUGS (5)
  1. ZYPREXA [Suspect]
     Dosage: 10 MG
     Dates: start: 20000501, end: 20040901
  2. SERZONE [Concomitant]
  3. ZOLOFT [Concomitant]
  4. QUETIAPINE [Concomitant]
  5. RISPERIDONE [Concomitant]

REACTIONS (7)
  - BLOOD CHOLESTEROL ABNORMAL [None]
  - DIABETES MELLITUS [None]
  - DIABETIC COMA [None]
  - DIABETIC KETOACIDOSIS [None]
  - HYPERTENSION [None]
  - METABOLIC DISORDER [None]
  - PANCREATITIS [None]
